FAERS Safety Report 15000859 (Version 1)
Quarter: 2018Q2

REPORT INFORMATION
  Report Type: Report from Study
  Country: BR (occurrence: BR)
  Receive Date: 20180612
  Receipt Date: 20180612
  Transmission Date: 20180711
  Serious: Yes (Other)
  Sender: FDA-Public Use
  Company Number: BR-JNJFOC-20170624964

PATIENT
  Age: 74 Year
  Sex: Female
  Weight: 55 kg

DRUGS (6)
  1. SIMPONI [Suspect]
     Active Substance: GOLIMUMAB
     Indication: RHEUMATOID ARTHRITIS
     Route: 058
     Dates: start: 20140407
  2. LEVOTHYROXINE. [Concomitant]
     Active Substance: LEVOTHYROXINE
     Route: 065
  3. LEFLUNOMIDE. [Concomitant]
     Active Substance: LEFLUNOMIDE
     Route: 065
  4. CALCIUM CARBONATE. [Concomitant]
     Active Substance: CALCIUM CARBONATE
     Route: 065
  5. VITAMIN D3 [Concomitant]
     Active Substance: CHOLECALCIFEROL
     Route: 065
  6. GLUCOSAMINE [Concomitant]
     Active Substance: GLUCOSAMINE
     Route: 065
     Dates: start: 201802

REACTIONS (7)
  - Sinusitis [Unknown]
  - Arthropathy [Unknown]
  - Wrist fracture [Unknown]
  - Influenza [Unknown]
  - Knee arthroplasty [Unknown]
  - Fall [Unknown]
  - Pneumonia [Unknown]

NARRATIVE: CASE EVENT DATE: 201409
